FAERS Safety Report 21568333 (Version 1)
Quarter: 2022Q4

REPORT INFORMATION
  Report Type: Spontaneous
  Country: US (occurrence: None)
  Receive Date: 20221107
  Receipt Date: 20221107
  Transmission Date: 20230112
  Serious: Yes (Hospitalization)
  Sender: FDA-Public Use
  Company Number: None

PATIENT
  Age: 74 Year
  Sex: Male
  Weight: 64.41 kg

DRUGS (1)
  1. EMPAGLIFLOZIN [Suspect]
     Active Substance: EMPAGLIFLOZIN
     Indication: Diabetes mellitus
     Dosage: 1 TAB EVERY DAY PO?
     Route: 048
     Dates: start: 20200915, end: 20220803

REACTIONS (3)
  - Prostatic abscess [None]
  - Prostatitis [None]
  - Urinary tract infection staphylococcal [None]

NARRATIVE: CASE EVENT DATE: 20210802
